FAERS Safety Report 7206268-0 (Version None)
Quarter: 2010Q4

REPORT INFORMATION
  Report Type: 
  Country: None (occurrence: None)
  Receive Date: 20101221
  Receipt Date: 20100907
  Transmission Date: 20110411
  Serious: Yes (Hospitalization)
  Sender: FDA-Public Use
  Company Number: 2010AP001929

PATIENT
  Age: 40 Year
  Sex: Male
  Weight: 95.2554 kg

DRUGS (16)
  1. TRAZODONE HYDROCHLORIDE [Suspect]
     Indication: DEPRESSION
     Dosage: 150 MG;HS;PO
     Route: 048
     Dates: start: 20100602, end: 20100605
  2. BLINDED THERAPY [Suspect]
     Indication: SPINAL CORD DISORDER
     Dosage: BID
     Dates: start: 20100510, end: 20100605
  3. CITALOPRAM HYDROBROMIDE [Concomitant]
  4. CLONIDINE [Concomitant]
  5. CYCLOBENZAPRINE [Concomitant]
  6. HYDROCHLORIDE [Concomitant]
  7. PROMETHAZINE [Concomitant]
  8. METHADONE [Concomitant]
  9. DIAZEPAM [Concomitant]
  10. HYDROCODONE BITARTRATE [Concomitant]
  11. PARACETAMOL [Concomitant]
  12. CARISOPRODOL [Concomitant]
  13. TIZANIDINE HYDROCHLORIDE [Concomitant]
  14. CLINDAMYCIN [Concomitant]
  15. CEFTRIAXONE SODIUM [Concomitant]
  16. GABAPENTIN [Concomitant]

REACTIONS (10)
  - ALANINE AMINOTRANSFERASE INCREASED [None]
  - ARTHRALGIA [None]
  - ASPARTATE AMINOTRANSFERASE INCREASED [None]
  - ATELECTASIS [None]
  - BACK PAIN [None]
  - DYSTONIA [None]
  - EPIDIDYMITIS [None]
  - MUSCLE RIGIDITY [None]
  - MYALGIA [None]
  - PROTEIN TOTAL DECREASED [None]
